FAERS Safety Report 10685016 (Version 1)
Quarter: 2014Q4

REPORT INFORMATION
  Report Type: Spontaneous
  Country: US (occurrence: None)
  Receive Date: 20141230
  Receipt Date: 20141230
  Transmission Date: 20150529
  Serious: Yes (Disabling)
  Sender: FDA-Public Use
  Company Number: None

PATIENT
  Age: 68 Year
  Sex: Female
  Weight: 77.11 kg

DRUGS (1)
  1. EPROSARTAN MESYLATE. [Suspect]
     Active Substance: EPROSARTAN MESYLATE
     Indication: HYPERTENSION
     Route: 048
     Dates: start: 20141121, end: 20141125

REACTIONS (9)
  - Back pain [None]
  - Product substitution issue [None]
  - Abdominal distension [None]
  - Diarrhoea [None]
  - Abdominal pain [None]
  - Chills [None]
  - Product quality issue [None]
  - Product contamination [None]
  - Nausea [None]

NARRATIVE: CASE EVENT DATE: 20141121
